FAERS Safety Report 12943420 (Version 2)
Quarter: 2017Q3

REPORT INFORMATION
  Report Type: Spontaneous
  Country: JP (occurrence: JP)
  Receive Date: 20161115
  Receipt Date: 20170810
  Transmission Date: 20171127
  Serious: Yes (Other)
  Sender: FDA-Public Use
  Company Number: JP-ELI_LILLY_AND_COMPANY-JP201611003253

PATIENT
  Age: 68 Year
  Sex: Male

DRUGS (4)
  1. CYRAMZA [Suspect]
     Active Substance: RAMUCIRUMAB
     Indication: LARGE CELL LUNG CANCER RECURRENT
     Dosage: 10 MG/KG, OTHER
     Route: 042
     Dates: start: 20160908
  2. DOCETAXEL. [Suspect]
     Active Substance: DOCETAXEL
     Dosage: 50 MG/M2, OTHER
     Route: 042
     Dates: start: 20161005
  3. DOCETAXEL. [Suspect]
     Active Substance: DOCETAXEL
     Dosage: 40 MG/M2, OTHER
     Route: 042
     Dates: start: 20161129
  4. DOCETAXEL. [Suspect]
     Active Substance: DOCETAXEL
     Indication: LARGE CELL LUNG CANCER RECURRENT
     Dosage: 60 MG/M2, OTHER
     Route: 042
     Dates: start: 20160908

REACTIONS (5)
  - Febrile neutropenia [Recovered/Resolved]
  - Arthralgia [Recovering/Resolving]
  - Hypoaesthesia [Recovering/Resolving]
  - Stomatitis [Recovering/Resolving]
  - Decreased appetite [Unknown]

NARRATIVE: CASE EVENT DATE: 201609
